FAERS Safety Report 24263705 (Version 1)
Quarter: 2024Q3

REPORT INFORMATION
  Report Type: Spontaneous
  Country: US (occurrence: US)
  Receive Date: 20240829
  Receipt Date: 20240829
  Transmission Date: 20241017
  Serious: Yes (Hospitalization, Other)
  Sender: HIKMA
  Company Number: US-MLMSERVICE-20240423-PI035922-00108-1

PATIENT
  Age: 20 Year
  Sex: Female

DRUGS (28)
  1. CITALOPRAM [Concomitant]
     Active Substance: CITALOPRAM\CITALOPRAM HYDROBROMIDE
     Indication: Major depression
     Dosage: UNKNOWN
     Route: 065
  2. CITALOPRAM [Concomitant]
     Active Substance: CITALOPRAM\CITALOPRAM HYDROBROMIDE
     Indication: Borderline personality disorder
  3. CITALOPRAM [Concomitant]
     Active Substance: CITALOPRAM\CITALOPRAM HYDROBROMIDE
     Indication: Post-traumatic stress disorder
  4. CITALOPRAM [Concomitant]
     Active Substance: CITALOPRAM\CITALOPRAM HYDROBROMIDE
     Indication: Anxiety disorder
  5. LITHIUM [Concomitant]
     Active Substance: LITHIUM
     Indication: Borderline personality disorder
     Dosage: UNKNOWN
     Route: 065
  6. LITHIUM [Concomitant]
     Active Substance: LITHIUM
     Indication: Post-traumatic stress disorder
  7. LITHIUM [Concomitant]
     Active Substance: LITHIUM
     Indication: Anxiety disorder
  8. LITHIUM [Concomitant]
     Active Substance: LITHIUM
     Indication: Major depression
  9. BUPROPION [Interacting]
     Active Substance: BUPROPION
     Indication: Post-traumatic stress disorder
     Dosage: UNKNOWN
     Route: 065
  10. BUPROPION [Interacting]
     Active Substance: BUPROPION
     Indication: Borderline personality disorder
  11. BUPROPION [Interacting]
     Active Substance: BUPROPION
     Indication: Anxiety disorder
  12. BUPROPION [Interacting]
     Active Substance: BUPROPION
     Indication: Major depression
  13. CHLORPROMAZINE [Interacting]
     Active Substance: CHLORPROMAZINE
     Indication: Major depression
     Dosage: 25 MILLIGRAM, TID, ON 8 HOURS
     Route: 065
  14. CHLORPROMAZINE [Interacting]
     Active Substance: CHLORPROMAZINE
     Indication: Borderline personality disorder
  15. CHLORPROMAZINE [Interacting]
     Active Substance: CHLORPROMAZINE
     Indication: Post-traumatic stress disorder
  16. CHLORPROMAZINE [Interacting]
     Active Substance: CHLORPROMAZINE
     Indication: Anxiety disorder
  17. CLOZAPINE [Interacting]
     Active Substance: CLOZAPINE
     Indication: Post-traumatic stress disorder
     Dosage: 100 MILLIGRAM, QD
     Route: 065
  18. CLOZAPINE [Interacting]
     Active Substance: CLOZAPINE
     Indication: Borderline personality disorder
  19. CLOZAPINE [Interacting]
     Active Substance: CLOZAPINE
     Indication: Anxiety disorder
  20. CLOZAPINE [Interacting]
     Active Substance: CLOZAPINE
     Indication: Major depression
  21. LAMOTRIGINE [Interacting]
     Active Substance: LAMOTRIGINE
     Indication: Borderline personality disorder
     Dosage: UNKNOWN
     Route: 065
  22. LAMOTRIGINE [Interacting]
     Active Substance: LAMOTRIGINE
     Indication: Post-traumatic stress disorder
  23. LAMOTRIGINE [Interacting]
     Active Substance: LAMOTRIGINE
     Indication: Anxiety disorder
  24. LAMOTRIGINE [Interacting]
     Active Substance: LAMOTRIGINE
     Indication: Major depression
  25. TOPIRAMATE [Interacting]
     Active Substance: TOPIRAMATE
     Indication: Borderline personality disorder
     Dosage: UNKNOWN
     Route: 065
  26. TOPIRAMATE [Interacting]
     Active Substance: TOPIRAMATE
     Indication: Post-traumatic stress disorder
  27. TOPIRAMATE [Interacting]
     Active Substance: TOPIRAMATE
     Indication: Anxiety disorder
  28. TOPIRAMATE [Interacting]
     Active Substance: TOPIRAMATE
     Indication: Major depression

REACTIONS (5)
  - Agranulocytosis [Recovered/Resolved]
  - Neutropenic sepsis [Recovered/Resolved]
  - Thrombocytosis [Recovered/Resolved]
  - Drug interaction [Recovered/Resolved]
  - Anaemia [Recovered/Resolved]
